FAERS Safety Report 9017303 (Version 1)
Quarter: 2013Q1

REPORT INFORMATION
  Report Type: Spontaneous
  Country: US (occurrence: US)
  Receive Date: 20130117
  Receipt Date: 20130117
  Transmission Date: 20140127
  Serious: No
  Sender: FDA-Public Use
  Company Number: US-PFIZER INC-2013016802

PATIENT
  Sex: Female

DRUGS (2)
  1. PREMPRO [Suspect]
     Indication: MENOPAUSE
     Dosage: UNK
     Route: 048
     Dates: start: 201101
  2. PREMPRO [Suspect]
     Indication: HOT FLUSH

REACTIONS (1)
  - Vulvovaginal mycotic infection [Unknown]
